FAERS Safety Report 16260011 (Version 1)
Quarter: 2019Q2

REPORT INFORMATION
  Report Type: Spontaneous
  Country: US (occurrence: US)
  Receive Date: 20190430
  Receipt Date: 20190430
  Transmission Date: 20190711
  Serious: Yes (Death)
  Sender: FDA-Public Use
  Company Number: None

PATIENT
  Sex: Male
  Weight: 65.7 kg

DRUGS (17)
  1. NINLARO [Suspect]
     Active Substance: IXAZOMIB CITRATE
     Dosage: ?          OTHER FREQUENCY:DAY 1, 8, 15 OF 28;?
     Route: 048
     Dates: start: 20171024, end: 20190430
  2. REVLIMID [Concomitant]
     Active Substance: LENALIDOMIDE
     Dates: start: 20171024, end: 20190430
  3. ASPIRN [Concomitant]
     Active Substance: ASPIRIN
     Dates: end: 20190430
  4. DEXAMETHASONE. [Concomitant]
     Active Substance: DEXAMETHASONE
     Dates: end: 20190430
  5. ARANESP [Concomitant]
     Active Substance: DARBEPOETIN ALFA
     Dates: end: 20190430
  6. METOPROLOL. [Concomitant]
     Active Substance: METOPROLOL
     Dates: end: 20190430
  7. CRESTOR [Concomitant]
     Active Substance: ROSUVASTATIN CALCIUM
     Dates: end: 20190430
  8. L-MENTHOL [Concomitant]
     Dates: end: 20190430
  9. MIRTAZAPINE. [Concomitant]
     Active Substance: MIRTAZAPINE
     Dates: end: 20190430
  10. VITAMIN B-6 [Concomitant]
     Active Substance: PYRIDOXINE
     Dates: end: 20190430
  11. DONEPEZIL. [Concomitant]
     Active Substance: DONEPEZIL
     Dates: end: 20190430
  12. ACYCLOVIR. [Concomitant]
     Active Substance: ACYCLOVIR
     Dates: end: 20190430
  13. CLARITIN [Concomitant]
     Active Substance: LORATADINE
     Dates: end: 20190430
  14. ALPRAZOLAM. [Concomitant]
     Active Substance: ALPRAZOLAM
     Dates: end: 20190430
  15. CITALOPRAM [Concomitant]
     Active Substance: CITALOPRAM HYDROBROMIDE
     Dates: end: 20190430
  16. BACTRIM [Concomitant]
     Active Substance: SULFAMETHOXAZOLE\TRIMETHOPRIM
     Dates: end: 20190430
  17. XGEVA [Concomitant]
     Active Substance: DENOSUMAB
     Dates: end: 20190430

REACTIONS (1)
  - Death [None]
